FAERS Safety Report 12009809 (Version 1)
Quarter: 2016Q1

REPORT INFORMATION
  Report Type: Spontaneous
  Country: US (occurrence: None)
  Receive Date: 20160204
  Receipt Date: 20160204
  Transmission Date: 20160526
  Serious: No
  Sender: FDA-Public Use
  Company Number: None

PATIENT
  Age: 56 Year
  Sex: Female

DRUGS (7)
  1. ORENCIA [Suspect]
     Active Substance: ABATACEPT
     Indication: RHEUMATOID ARTHRITIS
     Route: 058
     Dates: start: 20151030
  2. AZATHIOPRINE. [Concomitant]
     Active Substance: AZATHIOPRINE
  3. PANTOPRAZOLE [Concomitant]
     Active Substance: PANTOPRAZOLE SODIUM
  4. ONDANSETRON [Concomitant]
     Active Substance: ONDANSETRON
  5. CLONAZEPAM. [Concomitant]
     Active Substance: CLONAZEPAM
  6. CEVIMELINE. [Concomitant]
     Active Substance: CEVIMELINE
  7. SP GEL [Concomitant]

REACTIONS (5)
  - Nausea [None]
  - Nasal discomfort [None]
  - Vomiting [None]
  - Muscle spasms [None]
  - Dyskinesia [None]

NARRATIVE: CASE EVENT DATE: 20160202
